FAERS Safety Report 6484847-6 (Version None)
Quarter: 2009Q4

REPORT INFORMATION
  Report Type: 
  Country: None (occurrence: None)
  Receive Date: 20091209
  Receipt Date: 20091204
  Transmission Date: 20100525
  Serious: Yes (Life-Threatening, Hospitalization, Other)
  Sender: FDA-Public Use
  Company Number: FR-CELGENEUS-056-21880-09120427

PATIENT
  Sex: Female

DRUGS (3)
  1. REVLIMID [Suspect]
     Indication: MULTIPLE MYELOMA
     Route: 048
     Dates: start: 20090527, end: 20091008
  2. FENTANYL-100 [Concomitant]
     Indication: PAIN
     Route: 058
     Dates: start: 20090913, end: 20090928
  3. LYRICA [Concomitant]
     Indication: PAIN
     Route: 048
     Dates: start: 20090923, end: 20091009

REACTIONS (2)
  - ANAEMIA [None]
  - THROMBOCYTOPENIA [None]
